FAERS Safety Report 14373158 (Version 1)
Quarter: 2018Q1

REPORT INFORMATION
  Report Type: Spontaneous
  Country: US (occurrence: US)
  Receive Date: 20180110
  Receipt Date: 20180110
  Transmission Date: 20180509
  Serious: Yes (Other)
  Sender: FDA-Public Use
  Company Number: US-PFIZER INC-2018008592

PATIENT
  Age: 28 Year
  Sex: Female

DRUGS (1)
  1. XANAX [Suspect]
     Active Substance: ALPRAZOLAM
     Dosage: UNK

REACTIONS (13)
  - Anxiety [Unknown]
  - Photophobia [Unknown]
  - Withdrawal syndrome [Unknown]
  - Hallucination, auditory [Unknown]
  - Night sweats [Unknown]
  - Hyperacusis [Unknown]
  - Hallucination, visual [Unknown]
  - Temperature regulation disorder [Unknown]
  - Suicidal ideation [Unknown]
  - Nightmare [Unknown]
  - Insomnia [Unknown]
  - Panic attack [Unknown]
  - Anger [Unknown]
